FAERS Safety Report 8338453-9 (Version None)
Quarter: 2012Q2

REPORT INFORMATION
  Report Type: 
  Country: None (occurrence: None)
  Receive Date: 20120504
  Receipt Date: 20120425
  Transmission Date: 20120825
  Serious: Yes (Other)
  Sender: FDA-Public Use
  Company Number: GB-ROCHE-1017786

PATIENT
  Sex: Male
  Weight: 75 kg

DRUGS (5)
  1. PREDNISONE [Suspect]
     Indication: DIFFUSE LARGE B-CELL LYMPHOMA
     Dosage: MOST RECENT DOSE ON 22 NOV 2011, LAST DOSE TAKEN: 100 MG
     Route: 048
     Dates: start: 20111028
  2. DOXORUBICIN HYDROCHLORIDE [Suspect]
     Indication: DIFFUSE LARGE B-CELL LYMPHOMA
     Dosage: MOST RECENT DOSE ON 18 NOV 2011, LAST DOSE TAKEN: 94 MG
     Route: 042
     Dates: start: 20111028
  3. MABTHERA [Suspect]
     Indication: DIFFUSE LARGE B-CELL LYMPHOMA
     Dosage: VOLUME OF LAST DOSE: 710 ML, DOSE CONCENTRATION OF LAST DOSE TAKEN: 1 MG/ML, MOST RECENT DOSE ON 18
     Route: 042
     Dates: start: 20111027
  4. VINCRISTINE [Suspect]
     Indication: DIFFUSE LARGE B-CELL LYMPHOMA
     Dosage: MOST RECENT DOSE ON 18 NOV 2011, LAST DOSE TAKEN: 2 MG
     Route: 042
     Dates: start: 20111028
  5. CYCLOPHOSPHAMIDE [Suspect]
     Indication: DIFFUSE LARGE B-CELL LYMPHOMA
     Dosage: MOST RECENT DOSE ON 18 NOV 2011, LAST DOSE TAKEN: 1400 MG
     Route: 042
     Dates: start: 20111028

REACTIONS (1)
  - VENOUS THROMBOSIS [None]
